FAERS Safety Report 10947412 (Version 1)
Quarter: 2015Q1

REPORT INFORMATION
  Report Type: Spontaneous
  Country: US (occurrence: US)
  Receive Date: 20150323
  Receipt Date: 20150323
  Transmission Date: 20150721
  Serious: No
  Sender: FDA-Public Use
  Company Number: US-BAUSCH-SYM-2014-15047

PATIENT
  Age: 54 Year
  Sex: Male

DRUGS (1)
  1. XENAZINE [Suspect]
     Active Substance: TETRABENAZINE
     Indication: HUNTINGTON^S DISEASE
     Dosage: 12.5 MG IN MORNING AND 25 MG AT BEDTIME
     Route: 048
     Dates: start: 20130923

REACTIONS (7)
  - Cough [Unknown]
  - Condition aggravated [Unknown]
  - Abnormal behaviour [Unknown]
  - Dysphagia [Unknown]
  - Speech disorder [Unknown]
  - Hypersomnia [Unknown]
  - Choking sensation [Unknown]

NARRATIVE: CASE EVENT DATE: 20130923
